FAERS Safety Report 6626967-9 (Version None)
Quarter: 2010Q1

REPORT INFORMATION
  Report Type: 
  Country: None (occurrence: None)
  Receive Date: 20100311
  Receipt Date: 20100305
  Transmission Date: 20100710
  Serious: Yes (Death, Hospitalization)
  Sender: FDA-Public Use
  Company Number: US-CELGENEUS-163-21880-10021006

PATIENT
  Sex: Male
  Weight: 122.5 kg

DRUGS (14)
  1. REVLIMID [Suspect]
     Indication: B-CELL LYMPHOMA
     Route: 048
     Dates: start: 20100126, end: 20100211
  2. RITUXIMAB [Suspect]
     Indication: B-CELL LYMPHOMA
     Route: 065
  3. NEXIUM [Concomitant]
     Route: 048
     Dates: start: 20090108
  4. SINGULAIR [Concomitant]
     Indication: SEASONAL ALLERGY
     Route: 048
     Dates: start: 20090108
  5. FAMVIR [Concomitant]
     Indication: ANTIVIRAL PROPHYLAXIS
     Route: 048
     Dates: start: 20091008
  6. NEURONTIN [Concomitant]
     Route: 048
     Dates: start: 20100107
  7. CORTEF [Concomitant]
     Route: 048
     Dates: start: 20091204
  8. ASPIRIN [Concomitant]
     Indication: DRUG USE FOR UNKNOWN INDICATION
     Route: 065
  9. FLONASE [Concomitant]
     Indication: NASAL CONGESTION
     Route: 065
     Dates: start: 20100205
  10. FLONASE [Concomitant]
     Indication: COUGH
  11. TESSALON [Concomitant]
     Indication: COUGH
     Route: 048
     Dates: start: 20100205
  12. PROAIR HFA [Concomitant]
     Indication: COUGH
     Route: 055
     Dates: start: 20100205
  13. LEVAQUIN [Concomitant]
     Route: 065
     Dates: start: 20100209
  14. LEVAQUIN [Concomitant]
     Indication: PNEUMONITIS

REACTIONS (2)
  - DEATH [None]
  - PNEUMONITIS [None]
